FAERS Safety Report 12967459 (Version 1)
Quarter: 2016Q4

REPORT INFORMATION
  Report Type: Spontaneous
  Country: FR (occurrence: FR)
  Receive Date: 20161123
  Receipt Date: 20161123
  Transmission Date: 20170207
  Serious: Yes (Hospitalization)
  Sender: FDA-Public Use
  Company Number: FR-009507513-1611FRA009345

PATIENT
  Age: 99 Year
  Sex: Female

DRUGS (9)
  1. TERCIAN [Suspect]
     Active Substance: CYAMEMAZINE
     Indication: AGGRESSION
     Dosage: 3 GTT, TID ,   9 DROPS (3 DROPS, 3 PER DAY)
     Route: 048
     Dates: start: 20161021, end: 20161023
  2. PLAVIX [Concomitant]
     Active Substance: CLOPIDOGREL BISULFATE
     Dosage: UNK
  3. MOVICOL [Concomitant]
     Active Substance: POLYETHYLENE GLYCOL 3350\POTASSIUM CHLORIDE\SODIUM BICARBONATE\SODIUM CHLORIDE
     Dosage: UNK
  4. LERCANIDIPINE HYDROCHLORIDE [Concomitant]
     Active Substance: LERCANIDIPINE HYDROCHLORIDE
     Dosage: UNK
  5. ALPRAZOLAM. [Suspect]
     Active Substance: ALPRAZOLAM
     Indication: ANXIETY
     Dosage: UNK
     Route: 048
     Dates: start: 20161021, end: 20161026
  6. LANZOR [Concomitant]
     Active Substance: LANSOPRAZOLE
     Dosage: UNK
  7. NORSET [Suspect]
     Active Substance: MIRTAZAPINE
     Indication: ANXIETY
     Dosage: UNK
     Route: 048
     Dates: start: 20161020, end: 20161023
  8. BISOPROLOL FUMARATE. [Concomitant]
     Active Substance: BISOPROLOL FUMARATE
     Dosage: UNK
  9. TARDYFERON [Concomitant]
     Active Substance: FERROUS SULFATE
     Dosage: UNK

REACTIONS (1)
  - Hypothermia [Recovered/Resolved]

NARRATIVE: CASE EVENT DATE: 20161022
